FAERS Safety Report 20648084 (Version 2)
Quarter: 2022Q2

REPORT INFORMATION
  Report Type: Spontaneous
  Country: JP (occurrence: JP)
  Receive Date: 20220329
  Receipt Date: 20220422
  Transmission Date: 20220721
  Serious: No
  Sender: FDA-Public Use
  Company Number: JP-ELI_LILLY_AND_COMPANY-JP202203009447

PATIENT

DRUGS (2)
  1. CYRAMZA [Suspect]
     Active Substance: RAMUCIRUMAB
     Indication: Product used for unknown indication
     Dosage: UNK
     Route: 041
  2. ERLOTINIB HYDROCHLORIDE [Concomitant]
     Active Substance: ERLOTINIB HYDROCHLORIDE

REACTIONS (4)
  - Cutaneous vasculitis [Recovering/Resolving]
  - Papule [Recovering/Resolving]
  - Purpura [Recovering/Resolving]
  - Skin ulcer [Recovering/Resolving]
